FAERS Safety Report 9826854 (Version 1)
Quarter: 2014Q1

REPORT INFORMATION
  Report Type: Spontaneous
  Country: US (occurrence: US)
  Receive Date: 20140117
  Receipt Date: 20140117
  Transmission Date: 20141002
  Serious: No
  Sender: FDA-Public Use
  Company Number: US-GLAXOSMITHKLINE-A1007171A

PATIENT
  Age: 59 Year
  Sex: Female
  Weight: 71.4 kg

DRUGS (9)
  1. PROMACTA [Suspect]
     Indication: THROMBOCYTOPENIA
     Dosage: 75MG PER DAY
     Route: 048
     Dates: start: 20121219
  2. CELEBREX [Concomitant]
     Dates: end: 201210
  3. NPLATE [Concomitant]
     Dates: start: 20130214
  4. IVIG [Concomitant]
     Dates: start: 20121207, end: 20130315
  5. SYNTHROID [Concomitant]
  6. VITAMIN B12 [Concomitant]
  7. CALTRATE 600 + D [Concomitant]
  8. KLONOPIN [Concomitant]
  9. H.PYLORI/PACK [Concomitant]

REACTIONS (3)
  - Diarrhoea [Recovered/Resolved]
  - Joint stiffness [Not Recovered/Not Resolved]
  - Drug ineffective [Unknown]
